FAERS Safety Report 9689312 (Version 3)
Quarter: 2013Q4

REPORT INFORMATION
  Report Type: Spontaneous
  Country: DE (occurrence: DE)
  Receive Date: 20131114
  Receipt Date: 20131220
  Transmission Date: 20140711
  Serious: Yes (Other)
  Sender: FDA-Public Use
  Company Number: DE-PFIZER INC-2013321833

PATIENT
  Age: 59 Year
  Sex: Male
  Weight: 90 kg

DRUGS (4)
  1. SORTIS [Suspect]
     Indication: ARTERIOSCLEROSIS
     Dosage: 20 MG, 1X/DAY
     Route: 048
     Dates: end: 2013
  2. CIBACEN 10 [Concomitant]
     Indication: HYPERTENSION
     Dosage: 1 DF, 2X/DAY (1-0-1)
     Route: 048
  3. LERCANIDIPINE 10 [Concomitant]
     Indication: HYPERTENSION
     Dosage: 1 DF, 1X/DAY (0-0-1)
     Route: 048
  4. TORASEMIDE [Concomitant]
     Dosage: 5 MG, 1X/DAY (1-0-0)
     Route: 048

REACTIONS (2)
  - Cerebellar haemorrhage [Recovered/Resolved]
  - Hypertension [Recovered/Resolved]
